FAERS Safety Report 20291845 (Version 1)
Quarter: 2022Q1

REPORT INFORMATION
  Report Type: Spontaneous
  Country: US (occurrence: None)
  Receive Date: 20220104
  Receipt Date: 20220104
  Transmission Date: 20220423
  Serious: Yes (Other)
  Sender: FDA-Public Use
  Company Number: None

PATIENT
  Age: 35 Year
  Sex: Female
  Weight: 105 kg

DRUGS (1)
  1. BAMLANIVIMAB\ETESEVIMAB [Suspect]
     Active Substance: BAMLANIVIMAB\ETESEVIMAB
     Indication: COVID-19
     Dosage: FREQUENCY : ONCE?
     Route: 040
     Dates: start: 20211213, end: 20211213

REACTIONS (5)
  - Infusion related reaction [None]
  - Flushing [None]
  - Feeling hot [None]
  - Erythema [None]
  - Throat tightness [None]

NARRATIVE: CASE EVENT DATE: 20211213
